FAERS Safety Report 16054279 (Version 1)
Quarter: 2019Q1

REPORT INFORMATION
  Report Type: Spontaneous
  Country: US (occurrence: US)
  Receive Date: 20190308
  Receipt Date: 20190308
  Transmission Date: 20190418
  Serious: Yes (Life-Threatening, Hospitalization, Other)
  Sender: FDA-Public Use
  Company Number: US-BAXTER-2018BAX014522

PATIENT
  Age: 11 Day
  Sex: Female
  Weight: .74 kg

DRUGS (14)
  1. CEFOTAXIME [Concomitant]
     Active Substance: CEFOTAXIME SODIUM
     Indication: STAPHYLOCOCCAL INFECTION
     Route: 065
  2. GENTAMICIN SULFATE IN 0.9% SODIUM CHLORIDE INJECTION [Suspect]
     Active Substance: GENTAMICIN SULFATE
     Indication: ANTIBIOTIC THERAPY
     Dosage: FOR 96 HOURS
     Route: 065
  3. AMPICILLIN [Concomitant]
     Active Substance: AMPICILLIN
     Indication: ANTIBIOTIC THERAPY
     Dosage: FOR 96 HOURS
     Route: 065
  4. GENTAMICIN SULFATE IN 0.9% SODIUM CHLORIDE INJECTION [Suspect]
     Active Substance: GENTAMICIN SULFATE
     Indication: SEPSIS
     Dosage: DAY 11
     Route: 065
  5. HYDROCORTISONE. [Concomitant]
     Active Substance: HYDROCORTISONE
     Indication: HYPOTENSION
     Route: 065
  6. PHENOBARBITAL. [Concomitant]
     Active Substance: PHENOBARBITAL
     Indication: SEIZURE
     Route: 065
  7. DOBUTAMINE [Concomitant]
     Active Substance: DOBUTAMINE\DOBUTAMINE HYDROCHLORIDE
     Indication: HYPOTENSION
     Route: 065
  8. DOPAMINE [Concomitant]
     Active Substance: DOPAMINE\DOPAMINE HYDROCHLORIDE
     Indication: HYPOTENSION
     Route: 065
  9. METRONIDAZOLE INJECTION, USP [Suspect]
     Active Substance: METRONIDAZOLE
     Indication: TRICHOMONIASIS
     Dosage: ON DAY 21
     Route: 042
  10. VANCOMYCIN INJECTION, USP [Suspect]
     Active Substance: VANCOMYCIN
     Indication: STAPHYLOCOCCAL INFECTION
     Route: 065
  11. LEVETIRACETAM. [Concomitant]
     Active Substance: LEVETIRACETAM
     Indication: SEIZURE
     Route: 065
  12. VANCOMYCIN INJECTION, USP [Suspect]
     Active Substance: VANCOMYCIN
     Route: 065
  13. OXACILLIN [Suspect]
     Active Substance: OXACILLIN SODIUM
     Indication: SEPSIS
     Dosage: ON DAY 11
     Route: 042
  14. RIFAMPICIN [Concomitant]
     Active Substance: RIFAMPIN
     Indication: STAPHYLOCOCCAL INFECTION
     Route: 065

REACTIONS (1)
  - Drug ineffective [Unknown]
